FAERS Safety Report 8089397-1 (Version None)
Quarter: 2012Q1

REPORT INFORMATION
  Report Type: 
  Country: None (occurrence: None)
  Receive Date: 20120128
  Receipt Date: 20110720
  Transmission Date: 20120608
  Serious: No
  Sender: FDA-Public Use
  Company Number: US-ABBOTT-11P-163-0725054-00

PATIENT
  Age: 63 Year
  Sex: Female

DRUGS (9)
  1. HUMIRA [Suspect]
     Indication: PSORIASIS
     Dates: start: 20080201
  2. SIMVASTATIN [Concomitant]
     Indication: BLOOD CHOLESTEROL INCREASED
     Route: 048
  3. AMITRIPTYLINE HCL [Concomitant]
     Indication: PRODUCT USED FOR UNKNOWN INDICATION
     Route: 048
  4. TRIBENZOR [Concomitant]
     Indication: BLOOD PRESSURE INCREASED
     Dosage: DAILY
     Route: 048
  5. NAPROXEN (ALEVE) [Concomitant]
     Indication: PRODUCT USED FOR UNKNOWN INDICATION
  6. KETOPROFEN [Concomitant]
     Indication: PAIN
     Route: 048
  7. NEXIUM [Concomitant]
     Indication: GASTROOESOPHAGEAL REFLUX DISEASE
     Route: 048
  8. WELLBUTRIN [Concomitant]
     Indication: DEPRESSION
  9. PROVENTIL [Concomitant]
     Indication: PRODUCT USED FOR UNKNOWN INDICATION
     Dosage: 2 DIFFERENT DOSAGES, 1 DAILY, 1 RESCUE INHALER

REACTIONS (5)
  - RESPIRATORY TRACT INFECTION [None]
  - MUSCLE SPASMS [None]
  - WHEEZING [None]
  - HYPERHIDROSIS [None]
  - COUGH [None]
